FAERS Safety Report 9017320 (Version 1)
Quarter: 2013Q1

REPORT INFORMATION
  Report Type: Spontaneous
  Country: US (occurrence: US)
  Receive Date: 20130117
  Receipt Date: 20130117
  Transmission Date: 20140127
  Serious: No
  Sender: FDA-Public Use
  Company Number: US-PFIZER INC-2013018321

PATIENT
  Sex: Female

DRUGS (1)
  1. LYRICA [Suspect]
     Dosage: UNK
     Dates: start: 2006

REACTIONS (8)
  - Nasal congestion [Unknown]
  - Snoring [Unknown]
  - Drug dose omission [Unknown]
  - Hot flush [Unknown]
  - Cold sweat [Unknown]
  - Feeling cold [Unknown]
  - Influenza like illness [Unknown]
  - Dyspnoea [Unknown]
